FAERS Safety Report 12949289 (Version 1)
Quarter: 2016Q4

REPORT INFORMATION
  Report Type: Spontaneous
  Country: US (occurrence: US)
  Receive Date: 20161116
  Receipt Date: 20161116
  Transmission Date: 20170207
  Serious: Yes (Disabling, Other)
  Sender: FDA-Public Use
  Company Number: US-SAOL THERAPEUTICS-2016SAO01030

PATIENT
  Sex: Male

DRUGS (4)
  1. SALINE [Suspect]
     Active Substance: SODIUM CHLORIDE
     Dosage: UNK
     Route: 037
     Dates: start: 201005
  2. MORPHINE [Suspect]
     Active Substance: MORPHINE
     Route: 037
  3. LIORESAL [Suspect]
     Active Substance: BACLOFEN
     Indication: MUSCLE SPASTICITY
     Dosage: 204.2 ?G, \DAY
     Route: 037
  4. LIORESAL [Suspect]
     Active Substance: BACLOFEN
     Indication: MULTIPLE SCLEROSIS

REACTIONS (6)
  - Unevaluable event [Unknown]
  - Device alarm issue [Unknown]
  - Abasia [None]
  - Drug withdrawal syndrome [Unknown]
  - Overdose [Unknown]
  - Therapy non-responder [Unknown]

NARRATIVE: CASE EVENT DATE: 20000208
